FAERS Safety Report 10494771 (Version 3)
Quarter: 2014Q4

REPORT INFORMATION
  Report Type: Spontaneous
  Country: SE (occurrence: SE)
  Receive Date: 20141003
  Receipt Date: 20141022
  Transmission Date: 20150528
  Serious: Yes (Other)
  Sender: FDA-Public Use
  Company Number: SE-NOVOPROD-420247

PATIENT
  Age: 75 Year
  Sex: Female
  Weight: 62.5 kg

DRUGS (2)
  1. INSULATARD FLEXPEN [Suspect]
     Active Substance: INSULIN HUMAN
     Indication: TYPE 2 DIABETES MELLITUS
     Dosage: 9 IU, QD
     Route: 058
     Dates: start: 2005
  2. METFORMIN [Suspect]
     Active Substance: METFORMIN HYDROCHLORIDE
     Indication: TYPE 2 DIABETES MELLITUS
     Dosage: 850 MG, TID
     Route: 048
     Dates: start: 2000

REACTIONS (4)
  - Chronic lymphocytic leukaemia [Not Recovered/Not Resolved]
  - Device issue [Unknown]
  - Blood glucose increased [Unknown]
  - Incorrect dose administered by device [Unknown]

NARRATIVE: CASE EVENT DATE: 20140818
